FAERS Safety Report 9485298 (Version 1)
Quarter: 2013Q3

REPORT INFORMATION
  Report Type: Spontaneous
  Country: KR (occurrence: KR)
  Receive Date: 20130828
  Receipt Date: 20130828
  Transmission Date: 20140515
  Serious: Yes (Other)
  Sender: FDA-Public Use
  Company Number: KR-B.I. PHARMACEUTICALS,INC./RIDGEFIELD-2013-BI-26546YA

PATIENT
  Sex: Female

DRUGS (2)
  1. HARNAL [Suspect]
     Dosage: 1 ANZ
     Route: 048
     Dates: start: 201308
  2. VESICARE [Suspect]
     Route: 048
     Dates: start: 201308

REACTIONS (2)
  - Urinary retention [Unknown]
  - Off label use [Unknown]
